FAERS Safety Report 7832505-5 (Version None)
Quarter: 2011Q4

REPORT INFORMATION
  Report Type: 
  Country: None (occurrence: None)
  Receive Date: 20111024
  Receipt Date: 20111014
  Transmission Date: 20120403
  Serious: Yes (Hospitalization)
  Sender: FDA-Public Use
  Company Number: US-BIOGENIDEC-2010BI006470

PATIENT
  Age: 55 Year
  Sex: Female

DRUGS (1)
  1. TYSABRI [Suspect]
     Indication: MULTIPLE SCLEROSIS
     Route: 042
     Dates: start: 20080311, end: 20110215

REACTIONS (9)
  - SPINAL FUSION SURGERY [None]
  - MULTIPLE SCLEROSIS RELAPSE [None]
  - INJURY ASSOCIATED WITH DEVICE [None]
  - PAIN [None]
  - OEDEMA PERIPHERAL [None]
  - ADVERSE DRUG REACTION [None]
  - MEDICAL DEVICE DISCOMFORT [None]
  - MULTIPLE SCLEROSIS [None]
  - ADVERSE EVENT [None]
